FAERS Safety Report 7408063-6 (Version None)
Quarter: 2011Q2

REPORT INFORMATION
  Report Type: 
  Country: None (occurrence: None)
  Receive Date: 20110412
  Receipt Date: 20100506
  Transmission Date: 20111010
  Serious: No
  Sender: FDA-Public Use
  Company Number: US-PFIZER INC-2010057819

PATIENT

DRUGS (1)
  1. ZOLOFT [Suspect]
     Dosage: 300 MG, UNK

REACTIONS (2)
  - ELECTROCARDIOGRAM ABNORMAL [None]
  - ABDOMINAL PAIN [None]
